FAERS Safety Report 12194929 (Version 2)
Quarter: 2016Q1

REPORT INFORMATION
  Report Type: Report from Study
  Country: US (occurrence: US)
  Receive Date: 20160321
  Receipt Date: 20160329
  Transmission Date: 20160526
  Serious: Yes (Other)
  Sender: FDA-Public Use
  Company Number: US-AMGEN-USASP2016033584

PATIENT
  Age: 81 Year
  Sex: Female

DRUGS (1)
  1. PROLIA [Suspect]
     Active Substance: DENOSUMAB
     Indication: PRODUCT USED FOR UNKNOWN INDICATION
     Dosage: UNK
     Route: 065

REACTIONS (8)
  - Adverse drug reaction [Unknown]
  - Pain [Unknown]
  - Paraesthesia [Unknown]
  - Diabetes mellitus [Unknown]
  - Cystitis [Unknown]
  - Diabetic neuropathy [Unknown]
  - Chromaturia [Recovered/Resolved]
  - Herpes zoster [Not Recovered/Not Resolved]
